FAERS Safety Report 7539529-6 (Version None)
Quarter: 2011Q2

REPORT INFORMATION
  Report Type: 
  Country: None (occurrence: None)
  Receive Date: 20110610
  Receipt Date: 20110603
  Transmission Date: 20111010
  Serious: Yes (Hospitalization, Other)
  Sender: FDA-Public Use
  Company Number: JP-SHIRE-ALL1-2011-01272

PATIENT
  Age: 68 Year
  Sex: Male

DRUGS (10)
  1. WARFARIN SODIUM [Suspect]
     Indication: HYPERPHOSPHATAEMIA
     Dosage: 3 MG, 1X/DAY:QD
     Route: 048
  2. OXAROL [Concomitant]
     Dosage: 15 ?G, UNKNOWN
     Route: 042
     Dates: start: 20101006
  3. ALLOPURINOL [Concomitant]
     Indication: PRODUCT USED FOR UNKNOWN INDICATION
     Dosage: 100 MG, UNKNOWN
     Route: 048
  4. LANIRAPID [Concomitant]
     Indication: PRODUCT USED FOR UNKNOWN INDICATION
     Dosage: 0.05 MG, UNKNOWN
     Route: 048
  5. FOSRENOL [Suspect]
     Indication: HYPERPHOSPHATAEMIA
     Dosage: 750 MG, 1X/DAY:QD
     Route: 048
     Dates: start: 20100908
  6. OXAROL [Concomitant]
     Indication: PRODUCT USED FOR UNKNOWN INDICATION
     Dosage: 22.5 ?G, UNKNOWN
     Route: 042
     Dates: start: 20100113, end: 20101004
  7. CINACALCET HYDROCHLORIDE [Concomitant]
     Indication: HYPERPARATHYROIDISM SECONDARY
     Dosage: 100 MG, UNKNOWN
     Route: 048
     Dates: start: 20100120
  8. NESPO [Concomitant]
     Indication: PRODUCT USED FOR UNKNOWN INDICATION
     Dosage: 10 ?G, UNKNOWN
     Route: 042
     Dates: start: 20100906
  9. RABEPRAZOLE SODIUM [Concomitant]
     Indication: PRODUCT USED FOR UNKNOWN INDICATION
     Dosage: 10 MG, UNKNOWN
     Route: 048
  10. SEVELAMER HYDROCHLORIDE [Suspect]
     Indication: HYPERPHOSPHATAEMIA
     Dosage: 3000 MG, 1X/DAY:QD
     Route: 048
     Dates: start: 20100420

REACTIONS (3)
  - ANASTOMOTIC ULCER [None]
  - ANGINA PECTORIS [None]
  - HYPOTHYROIDISM [None]
